FAERS Safety Report 8908078 (Version 1)
Quarter: 2012Q4

REPORT INFORMATION
  Report Type: 
  Country: MX (occurrence: MX)
  Receive Date: 20121113
  Receipt Date: 20121113
  Transmission Date: 20130627
  Serious: Yes (Hospitalization, Other)
  Sender: FDA-Public Use
  Company Number: PHHY2012MX104527

PATIENT
  Sex: Male

DRUGS (6)
  1. DIOVAN [Suspect]
     Indication: HYPERTENSION
     Dosage: 2 tablets per day
     Dates: start: 200201
  2. SELOPRES ZOK [Concomitant]
     Indication: BLOOD CHOLESTEROL
     Dosage: 1 tablet daily
     Dates: start: 2006
  3. VYTORIN [Concomitant]
     Dosage: 1.5 DF daily
     Dates: start: 2006
  4. SLUCOPLANGE [Concomitant]
     Dosage: UNK
     Dates: start: 2006
  5. LOPRESSOR [Concomitant]
     Dosage: 1 DF daily
     Dates: start: 2009
  6. FARMEBAN [Concomitant]
     Dosage: 3 DF daily
     Dates: start: 2006

REACTIONS (4)
  - Prostate cancer [Not Recovered/Not Resolved]
  - Diabetes mellitus [Not Recovered/Not Resolved]
  - Gastritis [Not Recovered/Not Resolved]
  - Hypertension [Not Recovered/Not Resolved]
